FAERS Safety Report 17813458 (Version 2)
Quarter: 2020Q2

REPORT INFORMATION
  Report Type: Spontaneous
  Country: FR (occurrence: FR)
  Receive Date: 20200521
  Receipt Date: 20200610
  Transmission Date: 20200714
  Serious: Yes (Other)
  Sender: FDA-Public Use
  Company Number: NVSC2020FR139553

PATIENT
  Age: 78 Year
  Sex: Female
  Weight: 40 kg

DRUGS (9)
  1. AZARGA [Concomitant]
     Active Substance: BRINZOLAMIDE\TIMOLOL MALEATE
     Indication: PRODUCT USED FOR UNKNOWN INDICATION
     Dosage: UNK
     Route: 065
  2. VIREAD [Suspect]
     Active Substance: TENOFOVIR DISOPROXIL FUMARATE
     Indication: HEPATITIS B
     Dosage: UNK
     Route: 048
     Dates: start: 201701
  3. DOLIPRANE [Concomitant]
     Active Substance: ACETAMINOPHEN
     Indication: PRODUCT USED FOR UNKNOWN INDICATION
     Dosage: UNK
     Route: 065
  4. VOGALENE [Concomitant]
     Active Substance: METOPIMAZINE
     Indication: PRODUCT USED FOR UNKNOWN INDICATION
     Dosage: UNK
     Route: 065
  5. INEXIUM [Concomitant]
     Active Substance: ESOMEPRAZOLE
     Indication: PRODUCT USED FOR UNKNOWN INDICATION
     Dosage: UNK
     Route: 065
  6. DICLOFENAC [Suspect]
     Active Substance: DICLOFENAC
     Indication: INFLAMMATORY PAIN
     Dosage: UNK
     Route: 065
     Dates: start: 201608, end: 201909
  7. IBUFETUM [Suspect]
     Active Substance: IBUPROFEN
     Indication: INFLAMMATORY PAIN
     Dosage: UNK
     Route: 003
     Dates: start: 201808, end: 201911
  8. NAPROXENE [Suspect]
     Active Substance: NAPROXEN
     Indication: INFLAMMATORY PAIN
     Dosage: UNK
     Route: 048
     Dates: start: 201804, end: 201903
  9. BARACLUDE [Suspect]
     Active Substance: ENTECAVIR
     Indication: HEPATITIS B
     Dosage: UNK
     Route: 048
     Dates: start: 201809

REACTIONS (1)
  - Neutropenia [Not Recovered/Not Resolved]
